FAERS Safety Report 9821242 (Version 3)
Quarter: 2014Q3

REPORT INFORMATION
  Report Type: Spontaneous
  Country: US (occurrence: US)
  Receive Date: 20140116
  Receipt Date: 20140909
  Transmission Date: 20150326
  Serious: Yes (Death, Hospitalization, Other)
  Sender: FDA-Public Use
  Company Number: US-MERCK-1401USA007092

PATIENT
  Sex: Male
  Weight: 83.9 kg

DRUGS (4)
  1. JANUMET [Suspect]
     Active Substance: METFORMIN HYDROCHLORIDE\SITAGLIPTIN PHOSPHATE
     Dosage: 50-1000 MG, UNK
     Route: 048
     Dates: start: 20101020
  2. JANUVIA [Suspect]
     Active Substance: SITAGLIPTIN PHOSPHATE
     Dosage: 50 MG, BID
     Route: 048
     Dates: start: 20101108, end: 20111202
  3. JANUVIA [Suspect]
     Active Substance: SITAGLIPTIN PHOSPHATE
     Indication: INSULIN-REQUIRING TYPE 2 DIABETES MELLITUS
     Dosage: 100 MG, BID
     Route: 048
     Dates: start: 20080610, end: 20090824
  4. JANUMET [Suspect]
     Active Substance: METFORMIN HYDROCHLORIDE\SITAGLIPTIN PHOSPHATE
     Indication: INSULIN-REQUIRING TYPE 2 DIABETES MELLITUS
     Dosage: 50/500MG BID
     Route: 048
     Dates: start: 20091015, end: 20100917

REACTIONS (31)
  - Hyperthermia malignant [Unknown]
  - Confusional state [Unknown]
  - Escherichia infection [Unknown]
  - Candida infection [Unknown]
  - Splenectomy [Unknown]
  - Metabolic acidosis [Fatal]
  - Procedural nausea [Unknown]
  - Anaemia [Unknown]
  - Pancreatitis [Fatal]
  - Diabetic neuropathy [Unknown]
  - Klebsiella infection [Unknown]
  - Rash [Unknown]
  - Pancreatic carcinoma [Unknown]
  - Pancreatectomy [Unknown]
  - Acute respiratory failure [Unknown]
  - Dysuria [Unknown]
  - Pleural effusion [Unknown]
  - Pulmonary mass [Unknown]
  - Aortic calcification [Unknown]
  - Pulmonary oedema [Unknown]
  - Hip arthroplasty [Unknown]
  - Diabetic nephropathy [Fatal]
  - Hyperlipidaemia [Unknown]
  - Citrobacter infection [Unknown]
  - Arthritis [Unknown]
  - Procedural vomiting [Unknown]
  - Decubitus ulcer [Unknown]
  - Essential hypertension [Unknown]
  - Oedema peripheral [Unknown]
  - Cardiac murmur [Unknown]
  - Alveolar lung disease [Unknown]

NARRATIVE: CASE EVENT DATE: 201111
